FAERS Safety Report 4638815-7 (Version None)
Quarter: 2005Q2

REPORT INFORMATION
  Report Type: 
  Country: None (occurrence: None)
  Receive Date: 20050328
  Receipt Date: 20040216
  Transmission Date: 20051028
  Serious: No
  Sender: FDA-Public Use
  Company Number: USA050291031

PATIENT
  Age: 55 Year
  Sex: Female

DRUGS (4)
  1. STRATTERA [Suspect]
     Indication: NIGHTMARE
     Dosage: 80 MG/1 DAY
  2. CELEXA [Concomitant]
  3. VICODIN [Concomitant]
  4. XANAX (ALPRAZOLAM DUM) [Concomitant]

REACTIONS (3)
  - HYPERSOMNIA [None]
  - NAUSEA [None]
  - STOMACH DISCOMFORT [None]
